FAERS Safety Report 10300505 (Version 1)
Quarter: 2014Q3

REPORT INFORMATION
  Report Type: Spontaneous
  Country: US (occurrence: US)
  Receive Date: 20140713
  Receipt Date: 20140713
  Transmission Date: 20150326
  Serious: No
  Sender: FDA-Public Use
  Company Number: US-AMGEN INC.-USASP2014051741

PATIENT
  Age: 55 Year
  Sex: Male
  Weight: 97.51 kg

DRUGS (19)
  1. ENBREL [Suspect]
     Active Substance: ETANERCEPT
     Indication: PRODUCT USED FOR UNKNOWN INDICATION
     Dosage: 50 MG, 2 TIMES/WK (3-4 DAY APART)
     Route: 058
     Dates: start: 200412
  2. HYDROXYZINE HCL [Concomitant]
     Active Substance: HYDROXYZINE HYDROCHLORIDE
     Dosage: 25 MG, UNK
  3. NITROSTAT [Concomitant]
     Active Substance: NITROGLYCERIN
     Dosage: 0.6 MG, UNK
     Route: 060
  4. MUPIROCIN. [Concomitant]
     Active Substance: MUPIROCIN
     Dosage: 2 %
  5. AMLODIPINE [Concomitant]
     Active Substance: AMLODIPINE BESYLATE
     Dosage: 5 MG, UNK
  6. VICODIN [Concomitant]
     Active Substance: ACETAMINOPHEN\HYDROCODONE BITARTRATE
     Dosage: 5-500 MG, UNK
  7. METOPROLOL [Concomitant]
     Active Substance: METOPROLOL
     Dosage: 50 MG, UNK (ER)
  8. ZETIA [Concomitant]
     Active Substance: EZETIMIBE
     Dosage: 10 MG, UNK
  9. AQUAPHOR                           /00298701/ [Concomitant]
     Dosage: UNK
  10. EFFIENT [Concomitant]
     Active Substance: PRASUGREL HYDROCHLORIDE
     Dosage: 10 MG, UNK
  11. CHLORHEX GLUC ALCO [Concomitant]
     Dosage: 0.12 %, UNK
  12. ZANTAC 75 DISSOLVE [Concomitant]
     Dosage: UNK
  13. DEXAMETH SOD PHOS [Concomitant]
     Dosage: 0.1 %, UNK
     Route: 047
  14. VALIUM [Concomitant]
     Active Substance: DIAZEPAM
     Dosage: 5 MG, UNK
  15. TRIAMCINOLON                       /00031901/ [Concomitant]
     Dosage: 55 MCG/AC, UNK (SPR)
  16. NORCO [Concomitant]
     Active Substance: ACETAMINOPHEN\HYDROCODONE BITARTRATE
     Dosage: 10-325 MG UNK
  17. ASPIRIN EC [Concomitant]
     Active Substance: ASPIRIN
     Dosage: 81 MG, UNK
  18. CULTURELLE [Concomitant]
     Active Substance: LACTOBACILLUS RHAMNOSUS
     Dosage: UNK
  19. PRAVASTATIN [Concomitant]
     Active Substance: PRAVASTATIN\PRAVASTATIN SODIUM
     Dosage: 20 MG, UNK

REACTIONS (5)
  - Skin injury [Unknown]
  - Drug interaction [Unknown]
  - Injection site bruising [Unknown]
  - Abdominal discomfort [Unknown]
  - Skin haemorrhage [Unknown]
